FAERS Safety Report 4778047-5 (Version None)
Quarter: 2005Q3

REPORT INFORMATION
  Report Type: 
  Country: None (occurrence: None)
  Receive Date: 20050921
  Receipt Date: 20050909
  Transmission Date: 20060218
  Serious: Yes (Other)
  Sender: FDA-Public Use
  Company Number: KII-2005-0018567

PATIENT
  Age: 72 Year
  Sex: Female

DRUGS (4)
  1. OXYCONTIN [Suspect]
     Dosage: ORAL
     Route: 048
  2. MORPHINE SULFATE [Suspect]
     Indication: EMPHYSEMA
     Dosage: ORAL
     Route: 048
  3. ACETAMINOPHEN AND OXYCODONE HCL [Suspect]
     Dosage: ORAL
     Route: 048
  4. ANTIHYPERTENSIVES [Concomitant]

REACTIONS (7)
  - BRAIN SCAN ABNORMAL [None]
  - COMA [None]
  - CONFUSIONAL STATE [None]
  - HALLUCINATION [None]
  - MULTIPLE DRUG OVERDOSE [None]
  - PARANOIA [None]
  - PELVIC FRACTURE [None]
